FAERS Safety Report 9105889 (Version 2)
Quarter: 2013Q1

REPORT INFORMATION
  Report Type: Spontaneous
  Country: CH (occurrence: CH)
  Receive Date: 20130220
  Receipt Date: 20130301
  Transmission Date: 20140127
  Serious: Yes (Death)
  Sender: FDA-Public Use
  Company Number: CH-BAYER-2013-021866

PATIENT
  Age: 72 Year
  Sex: Male

DRUGS (1)
  1. ASPIRIN CARDIO [Suspect]
     Dosage: 100 MG, QD
     Route: 048
     Dates: end: 20121221

REACTIONS (2)
  - Subarachnoid haemorrhage [Fatal]
  - Rectal haemorrhage [Fatal]
